FAERS Safety Report 9207634 (Version 2)
Quarter: 2014Q1

REPORT INFORMATION
  Report Type: Spontaneous
  Country: US (occurrence: US)
  Receive Date: 20130403
  Receipt Date: 20140203
  Transmission Date: 20141002
  Serious: Yes (Other)
  Sender: FDA-Public Use
  Company Number: US-BAYER-2013-039956

PATIENT
  Age: 28 Year
  Sex: Female

DRUGS (7)
  1. YAZ [Suspect]
     Dosage: UNK
     Dates: start: 2006, end: 2011
  2. YASMIN [Suspect]
     Dosage: UNK
     Dates: start: 2006, end: 2011
  3. VALTREX [Concomitant]
     Dosage: 500 MG, UNK
  4. XANAX [Concomitant]
     Dosage: 0.5 MG TABLETS, 30 DISPENSED;
  5. DOXYCYCLINE [Concomitant]
     Dosage: 100 MG, UNK
  6. SULFACETAMIDE [Concomitant]
  7. ADVIL [Concomitant]
     Dosage: 200-400 MG TWICE PER WEEK

REACTIONS (6)
  - Gallbladder disorder [None]
  - Biliary dyskinesia [None]
  - Cholecystitis chronic [None]
  - Injury [None]
  - Pain [None]
  - Emotional distress [None]
